FAERS Safety Report 23999237 (Version 1)
Quarter: 2024Q2

REPORT INFORMATION
  Report Type: Spontaneous
  Country: ES (occurrence: ES)
  Receive Date: 20240621
  Receipt Date: 20240621
  Transmission Date: 20240716
  Serious: Yes (Hospitalization, Other)
  Sender: FDA-Public Use
  Company Number: ES-SUN PHARMACEUTICAL INDUSTRIES LTD-2024R1-451558

PATIENT
  Age: 62 Year
  Sex: Female

DRUGS (4)
  1. PREDNISONE [Suspect]
     Active Substance: PREDNISONE
     Indication: Acquired epidermolysis bullosa
     Dosage: 100 MILLIGRAM, DAILY
     Route: 065
  2. PREDNISONE [Suspect]
     Active Substance: PREDNISONE
     Dosage: 200 MILLIGRAM/DAY
     Route: 065
  3. DAPSONE [Suspect]
     Active Substance: DAPSONE
     Indication: Acquired epidermolysis bullosa
     Dosage: 0.5 MILLIGRAM/KILOGRAM BW/DAY
     Route: 065
  4. DAPSONE [Suspect]
     Active Substance: DAPSONE
     Dosage: 1 UNK
     Route: 065

REACTIONS (2)
  - Condition aggravated [Unknown]
  - Odynophagia [Unknown]
